FAERS Safety Report 22035351 (Version 2)
Quarter: 2023Q1

REPORT INFORMATION
  Report Type: Spontaneous
  Country: US (occurrence: US)
  Receive Date: 20230224
  Receipt Date: 20230320
  Transmission Date: 20230417
  Serious: Yes (Other)
  Sender: FDA-Public Use
  Company Number: US-SA-SAC20230221001574

PATIENT

DRUGS (1)
  1. LARONIDASE [Suspect]
     Active Substance: LARONIDASE
     Indication: Mucopolysaccharidosis I
     Dosage: 11.6 MG, QW
     Route: 041
     Dates: start: 202204

REACTIONS (3)
  - Enterovirus infection [Unknown]
  - Pyrexia [Not Recovered/Not Resolved]
  - Parainfluenzae virus infection [Unknown]

NARRATIVE: CASE EVENT DATE: 20230219
